FAERS Safety Report 19911275 (Version 1)
Quarter: 2021Q4

REPORT INFORMATION
  Report Type: Spontaneous
  Country: IN (occurrence: IN)
  Receive Date: 20211004
  Receipt Date: 20211004
  Transmission Date: 20220303
  Serious: Yes (Hospitalization, Other)
  Sender: FDA-Public Use
  Company Number: IN-LUPIN PHARMACEUTICALS INC.-2021-18652

PATIENT
  Age: 55 Year
  Sex: Male

DRUGS (2)
  1. FLUCYTOSINE [Suspect]
     Active Substance: FLUCYTOSINE
     Indication: Cryptococcosis
     Dosage: 100 MG/KG/DAY IN FOUR DIVIDED DOSES
     Route: 065
  2. AMPHOTERICIN B [Suspect]
     Active Substance: AMPHOTERICIN B
     Indication: Cryptococcosis
     Dosage: 0.8 MILLIGRAM/KILOGRAM, QD
     Route: 065

REACTIONS (1)
  - Immune reconstitution inflammatory syndrome [Unknown]
